FAERS Safety Report 15356881 (Version 3)
Quarter: 2019Q2

REPORT INFORMATION
  Report Type: Spontaneous
  Country: US (occurrence: US)
  Receive Date: 20180906
  Receipt Date: 20190617
  Transmission Date: 20190711
  Serious: No
  Sender: FDA-Public Use
  Company Number: US-SA-2018SA249055

PATIENT
  Age: 52 Year
  Sex: Female

DRUGS (16)
  1. ACETAMINOPHEN AND CODEINE [Concomitant]
     Active Substance: ACETAMINOPHEN\CODEINE PHOSPHATE
  2. METAXALONE. [Concomitant]
     Active Substance: METAXALONE
  3. BUPRENORPHINE. [Concomitant]
     Active Substance: BUPRENORPHINE
  4. RIZATRIPTAN. [Concomitant]
     Active Substance: RIZATRIPTAN
  5. TIZANIDINE. [Concomitant]
     Active Substance: TIZANIDINE
  6. AMMONIUM LACTATE. [Concomitant]
     Active Substance: AMMONIUM LACTATE
  7. DULOXETINE HCL [Concomitant]
     Active Substance: DULOXETINE HYDROCHLORIDE
  8. OMEPRAZOLE. [Concomitant]
     Active Substance: OMEPRAZOLE
  9. TOPIRAMATE. [Concomitant]
     Active Substance: TOPIRAMATE
  10. BACLOFEN. [Concomitant]
     Active Substance: BACLOFEN
  11. DUPIXENT [Suspect]
     Active Substance: DUPILUMAB
     Indication: DERMATITIS ATOPIC
     Dosage: 600 MG, 1X
     Route: 058
     Dates: start: 20180823, end: 20180823
  12. DUPIXENT [Suspect]
     Active Substance: DUPILUMAB
     Indication: ECZEMA
     Dosage: 1 DF, QOW
     Route: 058
     Dates: start: 2018
  13. ELIDEL [Concomitant]
     Active Substance: PIMECROLIMUS
  14. MOTEGRITY [Concomitant]
     Active Substance: PRUCALOPRIDE SUCCINATE
  15. CLONAZEPAM. [Concomitant]
     Active Substance: CLONAZEPAM
  16. AMITIZA [Concomitant]
     Active Substance: LUBIPROSTONE

REACTIONS (8)
  - Injection site swelling [Recovering/Resolving]
  - Injection site erythema [Unknown]
  - Dermatitis [Unknown]
  - Drug ineffective [Unknown]
  - Pruritus [Unknown]
  - Dry skin [Unknown]
  - Scab [Unknown]
  - Hair growth abnormal [Unknown]

NARRATIVE: CASE EVENT DATE: 201808
